FAERS Safety Report 6595240-X (Version None)
Quarter: 2010Q1

REPORT INFORMATION
  Report Type: 
  Country: None (occurrence: None)
  Receive Date: 20100212
  Receipt Date: 20100126
  Transmission Date: 20100710
  Serious: No
  Sender: FDA-Public Use
  Company Number: 20097818

PATIENT
  Sex: Male

DRUGS (1)
  1. LIORESAL [Suspect]
     Indication: MUSCLE SPASTICITY
     Dosage: 540 MCG, DAILY, INTRATHECAL
     Route: 037

REACTIONS (3)
  - IMPLANT SITE EROSION [None]
  - SCAR [None]
  - WOUND DEHISCENCE [None]
